FAERS Safety Report 12351015 (Version 1)
Quarter: 2016Q2

REPORT INFORMATION
  Report Type: Spontaneous
  Country: US (occurrence: None)
  Receive Date: 20160509
  Receipt Date: 20160509
  Transmission Date: 20160815
  Serious: Yes (Other)
  Sender: FDA-Public Use
  Company Number: None

PATIENT
  Age: 72 Year
  Sex: Female
  Weight: 58.97 kg

DRUGS (17)
  1. AMITRYPTILINE [Concomitant]
     Active Substance: AMITRIPTYLINE
  2. ESCITALOPRAM [Concomitant]
     Active Substance: ESCITALOPRAM OXALATE
  3. DILTIAZEM [Concomitant]
     Active Substance: DILTIAZEM
  4. JUBLIA [Concomitant]
     Active Substance: EFINACONAZOLE
  5. TURMERIC [Concomitant]
     Active Substance: TURMERIC
  6. VITAMIN D [Concomitant]
     Active Substance: CHOLECALCIFEROL
  7. BIOTIN [Concomitant]
     Active Substance: BIOTIN
  8. FISH OIL [Concomitant]
     Active Substance: FISH OIL
  9. ALOCANE [Suspect]
     Active Substance: LIDOCAINE HYDROCHLORIDE
     Indication: OCCIPITAL NEURALGIA
     Route: 061
     Dates: start: 20160505, end: 20160505
  10. RESTASIS [Concomitant]
     Active Substance: CYCLOSPORINE
  11. ASPIRIN. [Concomitant]
     Active Substance: ASPIRIN
  12. COENZYME Q10 [Concomitant]
     Active Substance: UBIDECARENONE
  13. CALCIUM [Concomitant]
     Active Substance: CALCIUM
  14. GLUCOSAMINE CHONDROITIN [Concomitant]
     Active Substance: CHONDROITIN SULFATE (BOVINE)\GLUCOSAMINE HYDROCHLORIDE
  15. PROBIOTIC [Concomitant]
     Active Substance: PROBIOTICS NOS
  16. OMEPRAZOLE. [Concomitant]
     Active Substance: OMEPRAZOLE
  17. VITAMIN B COMPLEX [Concomitant]
     Active Substance: CYANOCOBALAMIN\DEXPANTHENOL\NIACINAMIDE\PYRIDOXINE HYDROCHLORIDE\RIBOFLAVIN 5^-PHOSPHATE SODIUM\THIAMINE HYDROCHLORIDE\VITAMIN B COMPLEX

REACTIONS (4)
  - Skin disorder [None]
  - Pruritus [None]
  - Application site rash [None]
  - Application site pruritus [None]

NARRATIVE: CASE EVENT DATE: 20160505
